FAERS Safety Report 10402141 (Version 1)
Quarter: 2014Q3

REPORT INFORMATION
  Report Type: Spontaneous
  Country: NO (occurrence: NO)
  Receive Date: 20140822
  Receipt Date: 20140822
  Transmission Date: 20150326
  Serious: Yes (Other)
  Sender: FDA-Public Use
  Company Number: NO-BAYER-2014-123859

PATIENT
  Age: 37 Year
  Sex: Female

DRUGS (4)
  1. MIRENA [Suspect]
     Active Substance: LEVONORGESTREL
     Dosage: UNK
     Dates: start: 2011, end: 20140809
  2. MIRENA [Suspect]
     Active Substance: LEVONORGESTREL
     Dosage: UNK
     Dates: start: 2011, end: 20140809
  3. MIRENA [Suspect]
     Active Substance: LEVONORGESTREL
     Dosage: UNK
     Dates: start: 2002, end: 2010
  4. MIRENA [Suspect]
     Active Substance: LEVONORGESTREL
     Dosage: UNK

REACTIONS (7)
  - Device misuse [None]
  - Alopecia [None]
  - Migraine [None]
  - Acne [Recovered/Resolved]
  - Alopecia [None]
  - Autoimmune thyroiditis [None]
  - Pruritus [None]

NARRATIVE: CASE EVENT DATE: 2002
